FAERS Safety Report 6609789-4 (Version None)
Quarter: 2010Q1

REPORT INFORMATION
  Report Type: 
  Country: None (occurrence: None)
  Receive Date: 20100302
  Receipt Date: 20100217
  Transmission Date: 20100710
  Serious: Yes (Other)
  Sender: FDA-Public Use
  Company Number: PHHY2010GB05480

PATIENT
  Sex: Female

DRUGS (7)
  1. CLOZARIL [Suspect]
     Indication: SCHIZOPHRENIA
     Dosage: UNK
     Dates: start: 20030101
  2. CLOZARIL [Suspect]
     Dosage: UNK
     Dates: start: 20100114
  3. HALOPERIDOL [Suspect]
     Indication: AGITATION
     Dosage: 10 MG, UNK
     Route: 048
     Dates: start: 20091225, end: 20100108
  4. OLANZAPINE [Concomitant]
  5. VALPROATE SODIUM [Concomitant]
  6. LAMOTRIGINE [Concomitant]
  7. FRUSEMIDE [Concomitant]

REACTIONS (7)
  - CARDIAC MURMUR [None]
  - CYST [None]
  - DERMAL CYST [None]
  - ELECTROCARDIOGRAM QT PROLONGED [None]
  - MALAISE [None]
  - SKIN CANCER [None]
  - SKIN LESION [None]
